FAERS Safety Report 7283300-X (Version None)
Quarter: 2011Q1

REPORT INFORMATION
  Report Type: 
  Country: None (occurrence: None)
  Receive Date: 20110209
  Receipt Date: 20110128
  Transmission Date: 20110831
  Serious: Yes (Hospitalization)
  Sender: FDA-Public Use
  Company Number: HK-JNJFOC-20100708746

PATIENT
  Sex: Female

DRUGS (9)
  1. FOLIC ACID [Concomitant]
  2. LOSARTAN POTASSIUM [Concomitant]
  3. IBUPROFEN [Suspect]
     Indication: OSTEOARTHRITIS
     Route: 048
  4. NEXIUM [Concomitant]
  5. METHOTREXATE [Concomitant]
  6. NIFEDIPINE [Concomitant]
  7. SIMVASTATIN [Concomitant]
  8. FERROUS SULFATE TAB [Concomitant]
  9. IBUPROFEN [Suspect]
     Indication: RHEUMATOID ARTHRITIS
     Route: 048

REACTIONS (1)
  - COLONIC POLYP [None]
